FAERS Safety Report 4618387-3 (Version None)
Quarter: 2005Q1

REPORT INFORMATION
  Report Type: 
  Country: None (occurrence: None)
  Receive Date: 20050323
  Receipt Date: 20050307
  Transmission Date: 20050727
  Serious: Yes (Other)
  Sender: FDA-Public Use
  Company Number: FR_050205779

PATIENT
  Age: 72 Year
  Sex: Female

DRUGS (9)
  1. CELANCE (PERGOLIDE MESYLATE) [Suspect]
     Indication: PARKINSON'S DISEASE
     Dosage: 3 MG DAY
     Dates: start: 20001109
  2. MODOPAR [Concomitant]
  3. STAVELO [Concomitant]
  4. COMTAN [Concomitant]
  5. HEPT-A-MYL (HEPTAMINOL HYDROCHLORIDE) [Concomitant]
  6. CITALOPRAM HYDROBROMIDE [Concomitant]
  7. OXAZEPAM [Concomitant]
  8. AMITRIPTYLINE HCL [Concomitant]
  9. FENOFIBRATE [Concomitant]

REACTIONS (8)
  - AORTIC VALVE CALCIFICATION [None]
  - AORTIC VALVE INCOMPETENCE [None]
  - AORTIC VALVE STENOSIS [None]
  - CARDIAC FAILURE [None]
  - CARDIAC MURMUR [None]
  - HYPOTENSION [None]
  - MITRAL VALVE DISEASE [None]
  - PULMONARY HYPERTENSION [None]
